FAERS Safety Report 5276142-8 (Version None)
Quarter: 2007Q1

REPORT INFORMATION
  Report Type: 
  Country: None (occurrence: None)
  Receive Date: 20070326
  Receipt Date: 20061116
  Transmission Date: 20070707
  Serious: Yes (Hospitalization, Other)
  Sender: FDA-Public Use
  Company Number: FR-JNJFOC-20061000291

PATIENT
  Sex: Female
  Weight: 47 kg

DRUGS (9)
  1. TMC114 [Suspect]
     Route: 048
  2. TMC114 [Suspect]
     Indication: HIV INFECTION
     Route: 048
  3. NORVIR [Suspect]
     Indication: HIV INFECTION
     Route: 065
  4. TELZIR [Concomitant]
     Route: 065
  5. EMTRIVA [Concomitant]
     Route: 065
  6. SUSTIVA [Concomitant]
     Route: 065
  7. FUZEON [Concomitant]
     Route: 065
  8. DALACINE [Concomitant]
     Route: 065
  9. PYRIMETHAMINE TAB [Concomitant]
     Route: 065

REACTIONS (1)
  - HEPATITIS CHOLESTATIC [None]
